FAERS Safety Report 5481778-5 (Version None)
Quarter: 2007Q4

REPORT INFORMATION
  Report Type: 
  Country: None (occurrence: None)
  Receive Date: 20071004
  Receipt Date: 20070921
  Transmission Date: 20080405
  Serious: Yes (Hospitalization)
  Sender: FDA-Public Use
  Company Number: SPV1-2007-04245

PATIENT
  Age: 24 Year
  Sex: Male
  Weight: 125.2 kg

DRUGS (1)
  1. LIALDA [Suspect]
     Dosage: 2.4 G, 1X/DAY:QD, ORAL
     Route: 048
     Dates: start: 20070914

REACTIONS (1)
  - MYOCARDITIS [None]
